FAERS Safety Report 10776613 (Version 6)
Quarter: 2017Q4

REPORT INFORMATION
  Report Type: Report from Study
  Country: US (occurrence: US)
  Receive Date: 20150209
  Receipt Date: 20171127
  Transmission Date: 20180320
  Serious: Yes (Life-Threatening, Hospitalization)
  Sender: FDA-Public Use
  Company Number: US-SA-2015SA013612

PATIENT
  Age: 30 Year
  Sex: Female
  Weight: 81.19 kg

DRUGS (5)
  1. COPAXONE [Concomitant]
     Active Substance: GLATIRAMER ACETATE
     Indication: MULTIPLE SCLEROSIS
     Dates: start: 20141028, end: 20141222
  2. LISINOPRIL. [Concomitant]
     Active Substance: LISINOPRIL
  3. COPAXONE [Concomitant]
     Active Substance: GLATIRAMER ACETATE
     Indication: MULTIPLE SCLEROSIS
     Dates: start: 20100101, end: 20141021
  4. AUBAGIO [Suspect]
     Active Substance: TERIFLUNOMIDE
     Indication: RELAPSING-REMITTING MULTIPLE SCLEROSIS
     Route: 048
     Dates: start: 2014, end: 201502
  5. AUBAGIO [Suspect]
     Active Substance: TERIFLUNOMIDE
     Indication: RELAPSING-REMITTING MULTIPLE SCLEROSIS
     Route: 048

REACTIONS (5)
  - Anxiety [Unknown]
  - Heart rate increased [Recovering/Resolving]
  - Tachycardia [Recovering/Resolving]
  - Hypertension [Unknown]
  - Panic attack [Unknown]

NARRATIVE: CASE EVENT DATE: 2014
